FAERS Safety Report 11181057 (Version 2)
Quarter: 2015Q3

REPORT INFORMATION
  Report Type: Spontaneous
  Country: US (occurrence: US)
  Receive Date: 20150611
  Receipt Date: 20150721
  Transmission Date: 20151125
  Serious: Yes (Hospitalization)
  Sender: FDA-Public Use
  Company Number: US-PFIZER INC-2015196044

PATIENT
  Age: 68 Year
  Sex: Female

DRUGS (18)
  1. XELJANZ [Suspect]
     Active Substance: TOFACITINIB CITRATE
     Indication: RHEUMATOID ARTHRITIS
     Dosage: 5 MG, 2X/DAY
     Route: 048
     Dates: start: 20150306
  2. ZOFRAN [Concomitant]
     Active Substance: ONDANSETRON HYDROCHLORIDE
     Dosage: EVERY 8HOURS AS NEEDED (PRN)
     Route: 048
     Dates: start: 20150225
  3. ALPRAZOLAM. [Concomitant]
     Active Substance: ALPRAZOLAM
     Dosage: 0.125MG (HALF OF 0.25MG-TABLET) ONCE DAILY AT
     Route: 048
     Dates: start: 20130710
  4. DEXILANT [Concomitant]
     Active Substance: DEXLANSOPRAZOLE
     Dosage: 60 MG, UNK
     Route: 048
     Dates: start: 20150422
  5. LEFLUNOMIDE. [Suspect]
     Active Substance: LEFLUNOMIDE
     Dosage: 20 MG, DAILY
     Dates: start: 20140729
  6. ZITHROMAX [Concomitant]
     Active Substance: AZITHROMYCIN DIHYDRATE
     Dosage: 250 MG, UNK (AS DIRECTED)
     Route: 048
     Dates: start: 20141028
  7. AMLODIPINE [Concomitant]
     Active Substance: AMLODIPINE BESYLATE
     Dosage: 10 MG (2X5MG-TABLETS) ONCE DAILY AT BEDTIME
     Route: 048
     Dates: start: 20130710
  8. CHERATUSSIN AC [Concomitant]
     Active Substance: CODEINE PHOSPHATE\GUAIFENESIN
     Dosage: 2 ML (CODEINE-10MG,GUAIFENESIN-100MG/5ML) THRICE DAILY AS NEEDED
     Route: 048
     Dates: start: 20130710
  9. ALENDRONATE [Concomitant]
     Active Substance: ALENDRONATE SODIUM
     Dosage: 70 MG, WEEKLY
     Dates: start: 20150603
  10. CRESTOR [Concomitant]
     Active Substance: ROSUVASTATIN CALCIUM
     Dosage: 10 MG, DAILY
     Route: 048
     Dates: start: 20130710
  11. MONTELUKAST [Concomitant]
     Active Substance: MONTELUKAST SODIUM
     Dosage: 10 MG, DAILY
     Route: 048
     Dates: start: 20130710
  12. CALCIUM [Concomitant]
     Active Substance: CALCIUM
     Dosage: 1200MG QD
  13. LOSARTAN. [Concomitant]
     Active Substance: LOSARTAN
     Dosage: 50 MG, 2X/DAY
     Route: 048
     Dates: start: 20130710
  14. PREDNISONE. [Concomitant]
     Active Substance: PREDNISONE
     Dosage: 1-2 TABLETS ONCE DAILY IN THE MORNING
     Route: 048
     Dates: start: 20150422
  15. RABEPRAZOLE [Concomitant]
     Active Substance: RABEPRAZOLE
     Dosage: 20 MG, UNK
     Route: 048
     Dates: start: 20150210
  16. ULTRAM [Concomitant]
     Active Substance: TRAMADOL HYDROCHLORIDE
     Dosage: 1-2 TABLETS EVERY 4-6 HOURS PRN
     Route: 048
     Dates: start: 20130731
  17. VITAMIN D [Concomitant]
     Active Substance: CHOLECALCIFEROL
     Dosage: 5000 IU, DAILY
     Route: 048
     Dates: start: 20150306
  18. HYDROCODONE BITARTRATE AND ACETAMINOPHEN [Concomitant]
     Active Substance: ACETAMINOPHEN\HYDROCODONE BITARTRATE
     Dosage: 1 TABLET (HYDROCODONE 5 MG AND ACETAMINOPHEN 325 MG), AS NEEDED
     Route: 048
     Dates: start: 20150306

REACTIONS (4)
  - Glossodynia [Unknown]
  - Chest pain [Unknown]
  - Headache [Unknown]
  - Diarrhoea [Unknown]
